FAERS Safety Report 18614831 (Version 18)
Quarter: 2025Q2

REPORT INFORMATION
  Report Type: Report from Study
  Country: US (occurrence: US)
  Receive Date: 20201214
  Receipt Date: 20250522
  Transmission Date: 20250716
  Serious: Yes (Hospitalization, Other)
  Sender: TAKEDA
  Company Number: US-TAKEDA-2020TUS056658

PATIENT
  Age: 74 Year
  Sex: Female
  Weight: 77 kg

DRUGS (32)
  1. TEDUGLUTIDE [Suspect]
     Active Substance: TEDUGLUTIDE
     Indication: Short-bowel syndrome
     Dosage: 5 MILLIGRAM, QD
     Dates: start: 20200102
  2. TEDUGLUTIDE [Suspect]
     Active Substance: TEDUGLUTIDE
     Indication: Malnutrition
     Dosage: UNK UNK, QD
  3. TEDUGLUTIDE [Suspect]
     Active Substance: TEDUGLUTIDE
     Indication: Dehydration
     Dosage: 3.8 MILLIGRAM,QD
  4. TEDUGLUTIDE [Suspect]
     Active Substance: TEDUGLUTIDE
     Dosage: UNK UNK, QD
  5. TEDUGLUTIDE [Suspect]
     Active Substance: TEDUGLUTIDE
     Dosage: 3.8 MILLIGRAM, QD
  6. TEDUGLUTIDE [Suspect]
     Active Substance: TEDUGLUTIDE
     Dosage: 3.8 MILLIGRAM, QD
  7. TEDUGLUTIDE [Suspect]
     Active Substance: TEDUGLUTIDE
     Dosage: 3.8 MILLIGRAM, QD
  8. DOXYCYCLINE HYCLATE [Concomitant]
     Active Substance: DOXYCYCLINE HYCLATE
  9. TRAZODONE HCL [Concomitant]
     Active Substance: TRAZODONE HYDROCHLORIDE
  10. METOPROLOL TARTRATE [Concomitant]
     Active Substance: METOPROLOL TARTRATE
  11. CELEXA [Concomitant]
     Active Substance: CITALOPRAM HYDROBROMIDE
  12. CELEXA [Concomitant]
     Active Substance: CITALOPRAM HYDROBROMIDE
  13. CELEXA [Concomitant]
     Active Substance: CITALOPRAM HYDROBROMIDE
  14. ATROPINE\DIPHENOXYLATE [Concomitant]
     Active Substance: ATROPINE\DIPHENOXYLATE
  15. ATROPINE\DIPHENOXYLATE [Concomitant]
     Active Substance: ATROPINE\DIPHENOXYLATE
  16. VITAMIN D2 [Concomitant]
     Active Substance: ERGOCALCIFEROL
  17. WARFARIN SODIUM [Concomitant]
     Active Substance: WARFARIN SODIUM
  18. WARFARIN SODIUM [Concomitant]
     Active Substance: WARFARIN SODIUM
  19. WARFARIN SODIUM [Concomitant]
     Active Substance: WARFARIN SODIUM
  20. CHOLESTYRAMINE [Concomitant]
     Active Substance: CHOLESTYRAMINE
  21. BUSPIRONE HCL [Concomitant]
     Active Substance: BUSPIRONE HYDROCHLORIDE
  22. ASCORBIC ACID\CYANOCOBALAMIN\FOLIC ACID\IRON [Concomitant]
     Active Substance: ASCORBIC ACID\CYANOCOBALAMIN\FOLIC ACID\IRON
  23. VITAMIN D3 [Concomitant]
     Active Substance: CHOLECALCIFEROL
  24. LOMOTIL [Concomitant]
     Active Substance: ATROPINE SULFATE\DIPHENOXYLATE HYDROCHLORIDE
  25. LOMOTIL [Concomitant]
     Active Substance: ATROPINE SULFATE\DIPHENOXYLATE HYDROCHLORIDE
  26. VESICARE [Concomitant]
     Active Substance: SOLIFENACIN SUCCINATE
  27. INTRALIPID [Concomitant]
     Active Substance: EGG PHOSPHOLIPIDS\GLYCERIN\SOYBEAN OIL
  28. TPN [Concomitant]
     Active Substance: AMINO ACIDS\DEXTROSE\ELECTROLYTES NOS\SOYBEAN OIL
  29. UNSPECIFIED INGREDIENT [Concomitant]
     Active Substance: UNSPECIFIED INGREDIENT
  30. VANCOMYCIN [Concomitant]
     Active Substance: VANCOMYCIN
  31. RIFAMPIN [Concomitant]
     Active Substance: RIFAMPIN
  32. CEFADROXIL [Concomitant]
     Active Substance: CEFADROXIL

REACTIONS (20)
  - Staphylococcal infection [Unknown]
  - Sepsis [Recovered/Resolved]
  - Nephrolithiasis [Not Recovered/Not Resolved]
  - Short-bowel syndrome [Unknown]
  - Acute abdomen [Unknown]
  - Vascular device infection [Unknown]
  - COVID-19 pneumonia [Unknown]
  - Urinary tract infection [Recovering/Resolving]
  - Product availability issue [Unknown]
  - Diarrhoea [Unknown]
  - COVID-19 [Unknown]
  - Weight increased [Unknown]
  - Lipids decreased [Unknown]
  - Epigastric discomfort [Unknown]
  - Treatment noncompliance [Unknown]
  - Insurance issue [Unknown]
  - Product use issue [Unknown]
  - Inability to afford medication [Unknown]
  - Device issue [Unknown]
  - Weight decreased [Unknown]

NARRATIVE: CASE EVENT DATE: 20201101
